FAERS Safety Report 16747176 (Version 1)
Quarter: 2019Q3

REPORT INFORMATION
  Report Type: Report from Study
  Country: None (occurrence: US)
  Receive Date: 20190827
  Receipt Date: 20190827
  Transmission Date: 20191005
  Serious: Yes (Other)
  Sender: FDA-Public Use
  Company Number: US-ABBVIE-19K-163-2895317-00

PATIENT
  Age: 64 Year
  Sex: Female
  Weight: 80.81 kg

DRUGS (1)
  1. HUMIRA [Suspect]
     Active Substance: ADALIMUMAB
     Indication: COLITIS ULCERATIVE
     Route: 058
     Dates: start: 201810, end: 20190416

REACTIONS (9)
  - Mobility decreased [Recovering/Resolving]
  - Joint stiffness [Not Recovered/Not Resolved]
  - Hyperhidrosis [Recovered/Resolved]
  - Drug hypersensitivity [Recovering/Resolving]
  - Peripheral swelling [Recovering/Resolving]
  - Musculoskeletal disorder [Recovering/Resolving]
  - Chills [Recovered/Resolved]
  - Arthralgia [Recovering/Resolving]
  - White blood cell count increased [Recovering/Resolving]

NARRATIVE: CASE EVENT DATE: 20190421
